FAERS Safety Report 16200491 (Version 2)
Quarter: 2025Q3

REPORT INFORMATION
  Report Type: Report from Study
  Country: EU (occurrence: EU)
  Receive Date: 20190416
  Receipt Date: 20250816
  Transmission Date: 20251020
  Serious: Yes (Death, Other)
  Sender: AUROBINDO
  Company Number: EU-AUROBINDO-AUR-APL-2019-019420

PATIENT
  Age: 82 Year
  Sex: Female

DRUGS (5)
  1. PREDNISONE [Suspect]
     Active Substance: PREDNISONE
     Indication: Diffuse large B-cell lymphoma
     Route: 048
  2. DOXORUBICIN [Suspect]
     Active Substance: DOXORUBICIN
     Indication: Diffuse large B-cell lymphoma
     Route: 065
  3. VINCRISTINE [Suspect]
     Active Substance: VINCRISTINE
     Indication: Diffuse large B-cell lymphoma
     Route: 065
  4. OFATUMUMAB [Suspect]
     Active Substance: OFATUMUMAB
     Indication: Diffuse large B-cell lymphoma
     Route: 016
  5. CYCLOPHOSPHAMIDE [Suspect]
     Active Substance: CYCLOPHOSPHAMIDE
     Indication: Diffuse large B-cell lymphoma
     Route: 065

REACTIONS (5)
  - Hemiparesis [Fatal]
  - Malignant neoplasm progression [Fatal]
  - Diffuse large B-cell lymphoma [Fatal]
  - Product use in unapproved indication [Unknown]
  - Metastases to central nervous system [Fatal]
